FAERS Safety Report 7426144-8 (Version None)
Quarter: 2011Q2

REPORT INFORMATION
  Report Type: 
  Country: None (occurrence: None)
  Receive Date: 20110420
  Receipt Date: 20110411
  Transmission Date: 20111010
  Serious: Yes (Hospitalization)
  Sender: FDA-Public Use
  Company Number: PHHY2011DE17080

PATIENT
  Sex: Male
  Weight: 81 kg

DRUGS (10)
  1. OSYROL-LASIX [Concomitant]
     Indication: POLYURIA
     Dosage: 1000 MG, DAILY
     Route: 042
     Dates: start: 20110228
  2. KEPPRA [Concomitant]
     Indication: EPILEPSY
     Dosage: 1000 MG, QD
     Route: 048
     Dates: end: 20110228
  3. METOPROLOL [Concomitant]
     Dosage: 50 MG, QD
     Route: 048
     Dates: end: 20110228
  4. PANTOZOL [Concomitant]
     Dosage: 80 MG, DAILY
     Route: 042
     Dates: start: 20110228
  5. AFINITOR [Suspect]
     Indication: RENAL CELL CARCINOMA
     Dosage: 10MG DAILY
     Route: 048
     Dates: start: 20110217, end: 20110228
  6. DEXAMETHASONE [Concomitant]
     Indication: METASTATIC NEOPLASM
     Dosage: 8 MG, DAILY
     Route: 042
     Dates: start: 20110228
  7. LISIBETA [Concomitant]
     Indication: HYPERTENSION
     Dosage: 10 MG, QD
     Route: 048
     Dates: end: 20110228
  8. SIMVASTATIN [Concomitant]
     Indication: HYPERLIPIDAEMIA
     Dosage: 40 MG, QD
     Route: 048
     Dates: end: 20110228
  9. FLUCONAZOLE [Concomitant]
     Dosage: 100 MG, QD
     Route: 048
     Dates: end: 20110228
  10. ACETYLSALICYLIC ACID SRT [Concomitant]
     Indication: CORONARY ARTERY DISEASE
     Dosage: 100 MG, QD
     Route: 048
     Dates: end: 20110228

REACTIONS (3)
  - FAECES DISCOLOURED [None]
  - GASTRODUODENAL ULCER [None]
  - ANAEMIA [None]
